FAERS Safety Report 13601615 (Version 3)
Quarter: 2020Q3

REPORT INFORMATION
  Report Type: Spontaneous
  Country: US (occurrence: US)
  Receive Date: 20170601
  Receipt Date: 20200818
  Transmission Date: 20201102
  Serious: Yes (Other)
  Sender: FDA-Public Use
  Company Number: US-DRREDDYS-USA/USA/17/0091015

PATIENT
  Age: 55 Year
  Sex: Female

DRUGS (4)
  1. PROGESTERONE. [Suspect]
     Active Substance: PROGESTERONE
     Indication: LOSS OF LIBIDO
     Dosage: ANDROGEN THERAPY
     Route: 048
  2. TESTOSTERONE. [Suspect]
     Active Substance: TESTOSTERONE
     Indication: MENOPAUSAL SYMPTOMS
     Dosage: ANDROGEN THERAPY
     Route: 048
  3. TESTOSTERONE. [Suspect]
     Active Substance: TESTOSTERONE
     Indication: LOSS OF LIBIDO
  4. PROGESTERONE. [Suspect]
     Active Substance: PROGESTERONE
     Indication: LOSS OF LIBIDO

REACTIONS (1)
  - Chorioretinopathy [Recovered/Resolved]
